FAERS Safety Report 7622049-8 (Version None)
Quarter: 2011Q3

REPORT INFORMATION
  Report Type: 
  Country: None (occurrence: None)
  Receive Date: 20110720
  Receipt Date: 20110112
  Transmission Date: 20111222
  Serious: Yes (Other)
  Sender: FDA-Public Use
  Company Number: US-BAYER-200941191NA

PATIENT
  Age: 32 Year
  Sex: Female
  Weight: 68 kg

DRUGS (21)
  1. YASMIN [Suspect]
     Indication: ACNE
  2. VALIUM [Concomitant]
     Indication: BIPOLAR DISORDER
     Route: 048
     Dates: start: 20090413
  3. CALCIUM D [Concomitant]
     Dates: start: 20090413
  4. ZOLOFT [Concomitant]
     Dosage: 100 MG (DAILY DOSE), QD, ORAL
     Route: 048
  5. YASMIN [Suspect]
     Indication: ORAL CONTRACEPTION
     Dosage: SAMPLES RECEIVED AT YEARLY GYNECOLOGIC EXAMS. DOES NOT RECALL QUANTITY.
     Route: 048
     Dates: start: 20040101, end: 20070326
  6. YAZ [Suspect]
     Indication: PREMENSTRUAL SYNDROME
  7. LEXAPRO [Concomitant]
     Indication: BIPOLAR DISORDER
  8. PERCOCET [Concomitant]
     Indication: PAIN
     Dosage: 5/325 MG
     Route: 048
     Dates: start: 20090413
  9. CLARITIN [Concomitant]
     Dosage: 10 MG (DAILY DOSE), QD, ORAL
     Route: 048
     Dates: start: 20090413
  10. CITALOPRAM HYDROBROMIDE [Concomitant]
     Route: 048
  11. PREVACID [Concomitant]
     Indication: GASTRITIS
     Dosage: DAILY DOSE 30 MG
     Route: 048
  12. CALCIUM PLUS [CALCIUM,COLECALCIFEROL] [Concomitant]
     Dosage: UNK UNK, BIW - TIW
     Route: 048
  13. DIAZEPAM [Concomitant]
     Dosage: DAILY AS NEEDED
     Route: 048
  14. LOPRESSOR [Concomitant]
     Dosage: BID AS NEEDED
     Route: 048
  15. KLONOPIN [Concomitant]
     Dosage: 1 AND A HALF TABLET
     Route: 048
  16. WELLBUTRIN [Concomitant]
     Indication: BIPOLAR DISORDER
     Route: 048
     Dates: start: 20090413
  17. ALLEGRA [Concomitant]
     Dosage: DIALY AS NEEDED
     Route: 048
  18. YAZ [Suspect]
     Indication: ORAL CONTRACEPTION
     Dosage: SAMPLES RECEIVED AT YEARLY GYNECOLOGIC EXAMS. DOES NOT RECALL QUANTITY.
     Route: 048
     Dates: start: 20080501, end: 20090615
  19. YASMIN [Suspect]
     Indication: PREMENSTRUAL SYNDROME
  20. YAZ [Suspect]
     Indication: ACNE
  21. OXYCET [Concomitant]
     Dates: start: 20090413

REACTIONS (10)
  - PAIN [None]
  - CHOLECYSTITIS [None]
  - GASTRITIS [None]
  - MENTAL DISORDER [None]
  - GALLBLADDER CHOLESTEROLOSIS [None]
  - NAUSEA [None]
  - CHOLELITHIASIS [None]
  - GALLBLADDER DISORDER [None]
  - CHOLECYSTITIS CHRONIC [None]
  - VOMITING [None]
